FAERS Safety Report 9258004 (Version 3)
Quarter: 2013Q4

REPORT INFORMATION
  Report Type: Spontaneous
  Country: GB (occurrence: GB)
  Receive Date: 20130426
  Receipt Date: 20131001
  Transmission Date: 20140711
  Serious: Yes (Other)
  Sender: FDA-Public Use
  Company Number: GB-BAYER-2013-050410

PATIENT
  Age: 68 Year
  Sex: Male

DRUGS (7)
  1. NEXAVAR [Suspect]
     Indication: HEPATOCELLULAR CARCINOMA
     Dosage: UNK
     Dates: start: 20130208
  2. METFORMIN [Concomitant]
     Dosage: 1 G, BID
  3. TAMSULOSIN [Concomitant]
     Dosage: 400 MG, QD
  4. FUROSEMIDE [Concomitant]
     Dosage: 40 MG, QD
  5. GLICLAZIDE [Concomitant]
     Dosage: 80 MG, OM
  6. GLICLAZIDE [Concomitant]
     Dosage: 40 MG, HS
  7. TRAMADOL [Concomitant]
     Dosage: 40 MG, BID

REACTIONS (3)
  - Metabolic encephalopathy [Recovered/Resolved]
  - Mental impairment [Recovered/Resolved]
  - Blood pressure increased [Not Recovered/Not Resolved]
